FAERS Safety Report 5956734-0 (Version None)
Quarter: 2008Q4

REPORT INFORMATION
  Report Type: 
  Country: None (occurrence: None)
  Receive Date: 20081104
  Receipt Date: 20080922
  Transmission Date: 20090506
  Serious: Yes (Hospitalization)
  Sender: FDA-Public Use
  Company Number: 587818

PATIENT
  Age: 61 Year
  Sex: Female

DRUGS (3)
  1. IBANDRONIC ACID (IBANDRONIC ACID) [Suspect]
     Indication: OSTEOPOROSIS
     Dosage: 3 MG INTRAVENOUS
     Route: 042
  2. CALCIUM [Concomitant]
  3. VITAMIN D [Concomitant]

REACTIONS (1)
  - ACUTE PHASE REACTION [None]
